FAERS Safety Report 5758950-X (Version None)
Quarter: 2008Q2

REPORT INFORMATION
  Report Type: 
  Country: None (occurrence: None)
  Receive Date: 20080604
  Receipt Date: 20080527
  Transmission Date: 20081010
  Serious: Yes (Other)
  Sender: FDA-Public Use
  Company Number: US-BAYER-200811777BCC

PATIENT
  Sex: Female

DRUGS (1)
  1. ASPIRIN [Suspect]
     Indication: HEART RATE IRREGULAR
     Dosage: TOTAL DAILY DOSE: 650 MG  UNIT DOSE: 325 MG
     Route: 048

REACTIONS (1)
  - HEART RATE INCREASED [None]
